FAERS Safety Report 19684575 (Version 8)
Quarter: 2023Q4

REPORT INFORMATION
  Report Type: Spontaneous
  Country: US (occurrence: US)
  Receive Date: 20210811
  Receipt Date: 20231215
  Transmission Date: 20240110
  Serious: Yes (Hospitalization)
  Sender: FDA-Public Use
  Company Number: US-PFIZER INC-202100992809

PATIENT
  Age: 53 Year
  Sex: Male

DRUGS (4)
  1. BENEFIX [Suspect]
     Active Substance: COAGULATION FACTOR IX RECOMBINANT HUMAN\ISOPROPYL ALCOHOL
     Indication: Factor IX deficiency
     Dosage: INFUSE 6500UNITS (+/-10% ) SLOW IV PUSH FOR EACH BLEEDING EPISODE + AS NEEDED PRN
     Route: 042
  2. BENEFIX [Suspect]
     Active Substance: COAGULATION FACTOR IX RECOMBINANT HUMAN\ISOPROPYL ALCOHOL
     Indication: Haemorrhage
     Dosage: 500 UNIT INJECTION INFUSE 500 UNITS (+/- 10% ) SLOW IV PUSH FOR EACH BLEEDING EPISODE AND PRN
     Route: 042
  3. BENEFIX [Suspect]
     Active Substance: COAGULATION FACTOR IX RECOMBINANT HUMAN\ISOPROPYL ALCOHOL
     Indication: Chronic hepatitis C
  4. IBUPROFEN [Concomitant]
     Active Substance: IBUPROFEN
     Indication: Arthritis
     Dosage: UNK

REACTIONS (3)
  - Flank pain [Unknown]
  - Coagulation factor deficiency [Unknown]
  - Haematuria [Recovered/Resolved]
